FAERS Safety Report 10478412 (Version 1)
Quarter: 2014Q3

REPORT INFORMATION
  Report Type: Spontaneous
  Country: US (occurrence: US)
  Receive Date: 20140926
  Receipt Date: 20140926
  Transmission Date: 20150326
  Serious: No
  Sender: FDA-Public Use
  Company Number: US-TARO-2014P1002832

PATIENT
  Age: 10 Year
  Sex: Female
  Weight: 34.02 kg

DRUGS (1)
  1. OVIDE [Suspect]
     Active Substance: MALATHION
     Indication: LICE INFESTATION
     Dosage: X1
     Route: 061
     Dates: start: 20140329, end: 20140329

REACTIONS (3)
  - Application site burn [Unknown]
  - Expired product administered [Unknown]
  - Application site scab [Unknown]

NARRATIVE: CASE EVENT DATE: 20140330
